FAERS Safety Report 6686054-0 (Version None)
Quarter: 2010Q2

REPORT INFORMATION
  Report Type: 
  Country: None (occurrence: None)
  Receive Date: 20100419
  Receipt Date: 20100408
  Transmission Date: 20101027
  Serious: Yes (Hospitalization)
  Sender: FDA-Public Use
  Company Number: JP-ASTRAZENECA-2010SE13445

PATIENT
  Age: 27744 Day
  Sex: Male

DRUGS (7)
  1. MEROPEN [Suspect]
     Indication: PNEUMONIA
     Route: 041
     Dates: start: 20091218, end: 20091228
  2. MEROPEN [Suspect]
     Route: 041
     Dates: start: 20100104, end: 20100107
  3. SODIUM ALGINATE [Concomitant]
     Route: 048
     Dates: start: 20091113, end: 20091224
  4. NATEGLINIDE [Concomitant]
     Route: 048
     Dates: start: 20091124
  5. CEFEPIME HYDROCHLORIDE [Concomitant]
     Route: 042
     Dates: start: 20091205, end: 20091211
  6. LEVOFLOXACIN [Concomitant]
     Route: 048
     Dates: start: 20091212, end: 20091221
  7. FAROPENEM SODIUM [Concomitant]
     Route: 048
     Dates: start: 20091229, end: 20100103

REACTIONS (2)
  - HYPERKALAEMIA [None]
  - RADIATION PNEUMONITIS [None]
